FAERS Safety Report 6912305-0 (Version None)
Quarter: 2010Q3

REPORT INFORMATION
  Report Type: 
  Country: None (occurrence: None)
  Receive Date: 20100806
  Receipt Date: 20080226
  Transmission Date: 20110219
  Serious: No
  Sender: FDA-Public Use
  Company Number: US-PFIZER INC-2008018664

PATIENT
  Sex: Female
  Weight: 80.909 kg

DRUGS (2)
  1. DETROL LA [Suspect]
     Indication: BLADDER DISORDER
     Dates: start: 20070101
  2. NICARDIPINE HYDROCHLORIDE [Concomitant]
     Indication: HYPERTENSION

REACTIONS (3)
  - DRY EYE [None]
  - EYE IRRITATION [None]
  - EYE PRURITUS [None]
